FAERS Safety Report 9354376 (Version 1)
Quarter: 2013Q2

REPORT INFORMATION
  Report Type: Spontaneous
  Country: US (occurrence: US)
  Receive Date: 20130618
  Receipt Date: 20130618
  Transmission Date: 20140414
  Serious: No
  Sender: FDA-Public Use
  Company Number: US-009507513-1305USA003363

PATIENT
  Age: 53 Year
  Sex: Male

DRUGS (4)
  1. ZOCOR [Suspect]
     Indication: BLOOD CHOLESTEROL INCREASED
     Dosage: 10 MG, QD
     Route: 048
     Dates: start: 200805
  2. CELEBREX [Concomitant]
  3. PRINIVIL [Concomitant]
  4. ATORVASTATIN [Concomitant]
     Dosage: 5 MG, UNK

REACTIONS (1)
  - Myalgia [Recovering/Resolving]
